FAERS Safety Report 8505535-8 (Version None)
Quarter: 2012Q3

REPORT INFORMATION
  Report Type: 
  Country: None (occurrence: None)
  Receive Date: 20120712
  Receipt Date: 20120328
  Transmission Date: 20120928
  Serious: Yes (Hospitalization, Other)
  Sender: FDA-Public Use
  Company Number: JP-009507513-1207JPN000183

PATIENT

DRUGS (10)
  1. REMERON [Suspect]
     Dosage: 1 DF, ONCE
     Route: 048
     Dates: start: 20110730, end: 20111104
  2. LENDORMIN [Concomitant]
     Indication: DEPRESSION
     Dosage: THE DIVIDED DOSE FREQUENCY IS UNCERTAIN.
     Route: 048
     Dates: start: 20110305
  3. ROHYPNOL [Concomitant]
     Dosage: THE DIVIDED DOSE FREQUENCY IS UNCERTAIN.
     Route: 048
     Dates: start: 20111117, end: 20120130
  4. REMERON [Suspect]
     Dosage: 3 DF, ONCE
     Route: 048
     Dates: start: 20111117, end: 20120130
  5. NORVASC [Concomitant]
     Dosage: DOSAGE IS UNCERTAIN DURING A DAY.
     Route: 048
  6. TENORMIN [Concomitant]
     Dosage: DOSAGE IS UNCERTAIN DURING A DAY.
     Route: 048
  7. LONASEN [Concomitant]
     Indication: DEPRESSION
     Dosage: THE DIVIDED DOSE FREQUENCY IS UNCERTAIN.
     Route: 048
     Dates: start: 20090725, end: 20120130
  8. REMERON [Suspect]
     Dosage: 2 DF, ONCE
     Route: 048
     Dates: start: 20111105, end: 20111116
  9. FOIPAN [Concomitant]
     Dosage: DOSAGE IS UNCERTAIN DURING A DAY.
     Route: 048
  10. ROHYPNOL [Concomitant]
     Indication: INSOMNIA
     Dosage: THE DIVIDED DOSE FREQUENCY IS UNCERTAIN.
     Route: 048
     Dates: start: 20111105, end: 20111116

REACTIONS (6)
  - PANCREATITIS ACUTE [None]
  - RHABDOMYOLYSIS [None]
  - SOMNOLENCE [None]
  - GAIT DISTURBANCE [None]
  - ENTEROCOLITIS [None]
  - ARTHRITIS [None]
